FAERS Safety Report 17016880 (Version 2)
Quarter: 2019Q4

REPORT INFORMATION
  Report Type: Report from Study
  Country: JP (occurrence: JP)
  Receive Date: 20191111
  Receipt Date: 20191216
  Transmission Date: 20200122
  Serious: Yes (Other)
  Sender: FDA-Public Use
  Company Number: JP-GILEAD-2019-0436857

PATIENT
  Age: 27 Year
  Sex: Male

DRUGS (10)
  1. EPIVIR [Suspect]
     Active Substance: LAMIVUDINE
     Indication: HIV INFECTION
     Dosage: 150 MG, BID
     Route: 048
     Dates: start: 19980427, end: 20050913
  2. ZERIT [Suspect]
     Active Substance: STAVUDINE
     Indication: HIV INFECTION
     Dosage: 40 MG, BID
     Route: 048
     Dates: start: 19980427, end: 20050719
  3. EMTRICITABINE/TENOFOVIR DISOPROXIL FUMARATE [Suspect]
     Active Substance: EMTRICITABINE\TENOFOVIR DISOPROXIL FUMARATE
     Indication: HIV INFECTION
     Dosage: 1 DOSAGE FORM, QD
     Route: 048
     Dates: start: 20050914, end: 20170531
  4. VIRACEPT [Suspect]
     Active Substance: NELFINAVIR MESYLATE
     Dosage: 1250 MG, BID
     Route: 048
     Dates: start: 20010706, end: 20050719
  5. TENOFOVIR DISOPROXIL FUMARATE. [Suspect]
     Active Substance: TENOFOVIR DISOPROXIL FUMARATE
     Indication: HIV INFECTION
     Dosage: 300 MG, QD
     Route: 048
     Dates: start: 20050720, end: 20050913
  6. REYATAZ [Suspect]
     Active Substance: ATAZANAVIR SULFATE
     Indication: HIV INFECTION
     Dosage: 300 MG, QD
     Route: 048
     Dates: start: 20050720, end: 20120508
  7. VIRACEPT [Suspect]
     Active Substance: NELFINAVIR MESYLATE
     Indication: HIV INFECTION
     Dosage: 750 MG, TID
     Route: 048
     Dates: start: 19980427, end: 20010705
  8. NORVIR [Suspect]
     Active Substance: RITONAVIR
     Indication: HIV INFECTION
     Dosage: 100 MG, QD
     Route: 048
     Dates: start: 20050720, end: 20110607
  9. NORVIR [Concomitant]
     Active Substance: RITONAVIR
     Indication: HIV INFECTION
     Dosage: 100 MG, QD
     Route: 048
     Dates: start: 20110608, end: 20141025
  10. TIVICAY [Suspect]
     Active Substance: DOLUTEGRAVIR SODIUM
     Indication: HIV INFECTION
     Dosage: 50 MG, QD
     Route: 048
     Dates: start: 20141026

REACTIONS (6)
  - Hepatic function abnormal [Recovering/Resolving]
  - Hypertriglyceridaemia [Recovering/Resolving]
  - Hyperbilirubinaemia [Not Recovered/Not Resolved]
  - Folliculitis [Recovered/Resolved]
  - Hypertriglyceridaemia [Not Recovered/Not Resolved]
  - Hepatic function abnormal [Not Recovered/Not Resolved]

NARRATIVE: CASE EVENT DATE: 200002
